FAERS Safety Report 11414045 (Version 3)
Quarter: 2015Q3

REPORT INFORMATION
  Report Type: Spontaneous
  Country: US (occurrence: US)
  Receive Date: 20150824
  Receipt Date: 20150909
  Transmission Date: 20151125
  Serious: Yes (Other)
  Sender: FDA-Public Use
  Company Number: US-AMGEN-USASP2015083288

PATIENT
  Age: 0 Year
  Sex: Male
  Weight: 2.12 kg

DRUGS (4)
  1. ENBREL [Suspect]
     Active Substance: ETANERCEPT
     Indication: EXPOSURE DURING PREGNANCY
     Dosage: 25 MG, 2 TIMES/WK
     Route: 065
     Dates: start: 20000110, end: 20100601
  2. ENBREL [Suspect]
     Active Substance: ETANERCEPT
     Dosage: 25 MG, 2 TIMES/WK
     Route: 064
     Dates: start: 20111215
  3. PREDNISONE. [Concomitant]
     Active Substance: PREDNISONE
     Indication: JUVENILE IDIOPATHIC ARTHRITIS
     Dosage: 6 MG, DAILY
     Route: 048
     Dates: start: 20100601
  4. TOLMETINE [Concomitant]
     Indication: JUVENILE IDIOPATHIC ARTHRITIS
     Dosage: 600 MG, TID
     Route: 048
     Dates: start: 20150701

REACTIONS (3)
  - Breast feeding [Unknown]
  - Lung disorder [Unknown]
  - Premature baby [Recovered/Resolved]

NARRATIVE: CASE EVENT DATE: 2015
